FAERS Safety Report 5059649-8 (Version None)
Quarter: 2006Q3

REPORT INFORMATION
  Report Type: 
  Country: None (occurrence: None)
  Receive Date: 20060724
  Receipt Date: 20060718
  Transmission Date: 20061208
  Serious: Yes (Death)
  Sender: FDA-Public Use
  Company Number: 2006AP03346

PATIENT
  Age: 46 Year
  Sex: Female

DRUGS (2)
  1. XYLOCAINE [Suspect]
     Indication: LOCAL ANAESTHESIA
     Dosage: GIVEN TO BREAST BONE AREA
     Dates: start: 20060712, end: 20060712
  2. XYLOCAINE [Suspect]
     Dosage: GIVEN TO BREAST BONE AREA
     Dates: start: 20060712, end: 20060712

REACTIONS (5)
  - DEATH [None]
  - DYSPNOEA [None]
  - EYE ROLLING [None]
  - SUDDEN DEATH [None]
  - WRONG TECHNIQUE IN DRUG USAGE PROCESS [None]
